FAERS Safety Report 5707093-X (Version None)
Quarter: 2008Q2

REPORT INFORMATION
  Report Type: 
  Country: None (occurrence: None)
  Receive Date: 20080416
  Receipt Date: 20080407
  Transmission Date: 20081010
  Serious: Yes (Hospitalization)
  Sender: FDA-Public Use
  Company Number: JP-JNJFOC-20070202256

PATIENT
  Sex: Female
  Weight: 52 kg

DRUGS (26)
  1. INFLIXIMAB [Suspect]
     Route: 042
  2. INFLIXIMAB [Suspect]
     Route: 042
  3. INFLIXIMAB [Suspect]
     Route: 042
  4. INFLIXIMAB [Suspect]
     Indication: PUSTULAR PSORIASIS
     Route: 042
  5. PREDONINE [Suspect]
     Route: 048
  6. PREDONINE [Suspect]
     Route: 048
  7. PREDONINE [Suspect]
     Route: 048
  8. PREDONINE [Suspect]
     Route: 048
  9. PREDONINE [Suspect]
     Indication: PUSTULAR PSORIASIS
     Route: 048
  10. ATARAX [Concomitant]
     Indication: PUSTULAR PSORIASIS
     Route: 048
  11. FOSAMAX [Concomitant]
     Route: 048
  12. FOSAMAX [Concomitant]
     Indication: OSTEOPOROSIS
     Route: 048
  13. LOCHOL [Concomitant]
     Indication: HYPERLIPIDAEMIA
     Route: 048
  14. NIPOLAZIN [Concomitant]
     Indication: PUSTULAR PSORIASIS
     Route: 048
  15. ALPRAZOLAM [Concomitant]
     Route: 048
  16. ALPRAZOLAM [Concomitant]
     Indication: INSOMNIA
     Dosage: START DATE BEFORE 04-OCT-06
     Route: 048
  17. SELBEX [Concomitant]
     Indication: GASTROINTESTINAL DISORDER
     Route: 048
  18. AMLODIN [Concomitant]
     Route: 048
  19. AMLODIN [Concomitant]
     Indication: HYPERTENSION
     Dosage: START DATE BEFORE 04-OCT-06
     Route: 048
  20. ALESION [Concomitant]
     Indication: PUSTULAR PSORIASIS
     Route: 048
  21. ACECOL [Concomitant]
     Indication: HYPERTENSION
     Route: 048
  22. TAKEPRON OD [Concomitant]
     Indication: GASTROINTESTINAL DISORDER
     Route: 048
  23. LENDORMIN D [Concomitant]
     Indication: INSOMNIA
     Route: 048
  24. NERISONA [Concomitant]
     Dosage: ADEQUATE DOSE
     Route: 061
  25. NERISONA [Concomitant]
     Indication: PUSTULAR PSORIASIS
     Dosage: START DATE BEFORE 04-OCT-06, ADEQUATE DOSE
     Route: 061
  26. AZUNOL [Concomitant]
     Indication: PUSTULAR PSORIASIS
     Dosage: ADEQUATE DOSE
     Route: 061

REACTIONS (5)
  - HERPES ZOSTER [None]
  - INTERVERTEBRAL DISCITIS [None]
  - PLEURAL EFFUSION [None]
  - RETROPERITONEAL ABSCESS [None]
  - SPONDYLITIS [None]
